FAERS Safety Report 10248891 (Version 1)
Quarter: 2014Q2

REPORT INFORMATION
  Report Type: Spontaneous
  Country: US (occurrence: US)
  Receive Date: 20140620
  Receipt Date: 20140620
  Transmission Date: 20141212
  Serious: Yes (Other)
  Sender: FDA-Public Use
  Company Number: US-JNJFOC-20140608490

PATIENT
  Sex: Male
  Weight: 88.45 kg

DRUGS (2)
  1. TOPAMAX [Suspect]
     Indication: JUVENILE MYOCLONIC EPILEPSY
     Dosage: 500MG OR 550MG PER DAY INITIATED IN 1998 OR 1999, DISCONTINUED ON THE SAME YEAR.
     Route: 048
  2. LAMICTAL [Concomitant]
     Indication: EPILEPSY
     Route: 048

REACTIONS (5)
  - Exercise tolerance decreased [Unknown]
  - Fat tissue decreased [Unknown]
  - Muscle atrophy [Unknown]
  - Wrong technique in drug usage process [Unknown]
  - Alopecia [Unknown]
